FAERS Safety Report 5625515-X (Version None)
Quarter: 2008Q1

REPORT INFORMATION
  Report Type: 
  Country: None (occurrence: None)
  Receive Date: 20080211
  Receipt Date: 20080211
  Transmission Date: 20080703
  Serious: Yes (Other)
  Sender: FDA-Public Use
  Company Number: None

PATIENT
  Age: 55 Year
  Sex: Male

DRUGS (3)
  1. FLUDARABINE [Suspect]
     Indication: NON-HODGKIN'S LYMPHOMA
     Dosage: 250MG/M2 DAY1-3 Q-28D
     Dates: start: 20040518, end: 20041007
  2. MITOXANTRONE [Suspect]
     Indication: NON-HODGKIN'S LYMPHOMA
     Dosage: 25MG/M2 DAY1 Q28D X6 CY
     Dates: start: 20040518, end: 20041007
  3. ZEVALIN [Suspect]
     Indication: NON-HODGKIN'S LYMPHOMA
     Dosage: 0.3MCI/KG
     Dates: start: 20041124

REACTIONS (1)
  - CYTOGENETIC ABNORMALITY [None]
